FAERS Safety Report 20528437 (Version 2)
Quarter: 2022Q1

REPORT INFORMATION
  Report Type: Spontaneous
  Country: AT (occurrence: AT)
  Receive Date: 20220228
  Receipt Date: 20220303
  Transmission Date: 20220424
  Serious: Yes (Death, Other)
  Sender: FDA-Public Use
  Company Number: AT-GLAXOSMITHKLINE-AT2022EME007890

PATIENT
  Sex: Female

DRUGS (3)
  1. DEXAMETHASONE [Suspect]
     Active Substance: DEXAMETHASONE
     Indication: Product used for unknown indication
     Dosage: 20 MILLIGRAM, QW (20 MG, WE)
     Dates: start: 202007
  2. BLENREP [Suspect]
     Active Substance: BELANTAMAB MAFODOTIN-BLMF
     Indication: Product used for unknown indication
     Dosage: 2.5 MILLIGRAM/KILOGRAM, QW (UNK UNK, WE 2.5MG/KG D1,8,15)
     Dates: start: 202007
  3. BLENREP [Suspect]
     Active Substance: BELANTAMAB MAFODOTIN-BLMF
     Dosage: 2.5 MILLIGRAM/KILOGRAM, Q3W (2.5 MG/KG, Z (EVERY 3 WEEK))
     Dates: start: 202007

REACTIONS (8)
  - Death [Fatal]
  - Polyneuropathy [Unknown]
  - Therapy cessation [Unknown]
  - Sleep disorder [Unknown]
  - Product use issue [Unknown]
  - Conjunctival oedema [Unknown]
  - Condition aggravated [Unknown]
  - Serology abnormal [Unknown]
